FAERS Safety Report 15911485 (Version 1)
Quarter: 2019Q1

REPORT INFORMATION
  Report Type: Spontaneous
  Country: US (occurrence: US)
  Receive Date: 20190204
  Receipt Date: 20190204
  Transmission Date: 20190417
  Serious: No
  Sender: FDA-Public Use
  Company Number: US-ABBVIE-18K-163-2410357-00

PATIENT

DRUGS (1)
  1. HUMIRA [Suspect]
     Active Substance: ADALIMUMAB
     Indication: PRODUCT USED FOR UNKNOWN INDICATION
     Route: 058

REACTIONS (9)
  - Pain in extremity [Unknown]
  - Arthralgia [Unknown]
  - Arthritis [Unknown]
  - Sensitivity to weather change [Unknown]
  - Insomnia [Unknown]
  - Back pain [Unknown]
  - Fatigue [Unknown]
  - Stress [Unknown]
  - Pain [Unknown]
